FAERS Safety Report 21336418 (Version 1)
Quarter: 2022Q3

REPORT INFORMATION
  Report Type: Spontaneous
  Country: US (occurrence: US)
  Receive Date: 20220915
  Receipt Date: 20220915
  Transmission Date: 20221026
  Serious: No
  Sender: FDA-Public Use
  Company Number: US-JNJFOC-20220923016

PATIENT

DRUGS (1)
  1. ROGAINE [Suspect]
     Active Substance: MINOXIDIL
     Indication: Product used for unknown indication
     Dosage: USING REGULARLY THIS PRODUCT FOR A COUPLE OF YEARS
     Route: 065

REACTIONS (1)
  - Alopecia [Unknown]
